FAERS Safety Report 5662751-0 (Version None)
Quarter: 2008Q1

REPORT INFORMATION
  Report Type: 
  Country: None (occurrence: None)
  Receive Date: 20080311
  Receipt Date: 20080311
  Transmission Date: 20080703
  Serious: Yes (Hospitalization)
  Sender: FDA-Public Use
  Company Number: None

PATIENT
  Age: 65 Year
  Sex: Male
  Weight: 88.7 kg

DRUGS (4)
  1. TORISEL [Suspect]
     Indication: RENAL CELL CARCINOMA
     Dosage: 25 MG WEEKLY IV
     Route: 042
     Dates: start: 20071004, end: 20071011
  2. CIPROFLOXACIN HCL [Concomitant]
  3. DICLOXACILLIN [Concomitant]
  4. IBUPROFEN [Concomitant]

REACTIONS (2)
  - BODY TEMPERATURE INCREASED [None]
  - PULMONARY TOXICITY [None]
